FAERS Safety Report 4303449-0 (Version None)
Quarter: 2004Q1

REPORT INFORMATION
  Report Type: 
  Country: None (occurrence: None)
  Receive Date: 20040223
  Receipt Date: 20040202
  Transmission Date: 20041129
  Serious: No
  Sender: FDA-Public Use
  Company Number: A01200400478

PATIENT
  Age: 70 Year
  Sex: Male

DRUGS (1)
  1. ZOLPIDEM TARTRATE-TABLET-5 MG [Suspect]
     Dosage: 5 MG ONCE ORAL
     Route: 048
     Dates: start: 20040109, end: 20040109

REACTIONS (1)
  - DELIRIUM [None]
